FAERS Safety Report 7316251-2 (Version None)
Quarter: 2011Q1

REPORT INFORMATION
  Report Type: 
  Country: None (occurrence: None)
  Receive Date: 20110225
  Receipt Date: 20110222
  Transmission Date: 20110831
  Serious: Yes (Death, Hospitalization)
  Sender: FDA-Public Use
  Company Number: US-CEPHALON-2011000552

PATIENT
  Sex: Female
  Weight: 75 kg

DRUGS (3)
  1. VELCADE [Suspect]
     Indication: WALDENSTROM'S MACROGLOBULINAEMIA
     Route: 042
     Dates: start: 20110117, end: 20110131
  2. BENDAMUSTINE HCL [Suspect]
     Indication: WALDENSTROM'S MACROGLOBULINAEMIA
     Route: 041
     Dates: start: 20110118, end: 20110118
  3. RITUXAN [Suspect]
     Indication: WALDENSTROM'S MACROGLOBULINAEMIA
     Route: 042
     Dates: start: 20110117, end: 20110131

REACTIONS (2)
  - INTESTINAL PERFORATION [None]
  - EMBOLIC STROKE [None]
